FAERS Safety Report 16244193 (Version 4)
Quarter: 2019Q2

REPORT INFORMATION
  Report Type: Spontaneous
  Country: JP (occurrence: JP)
  Receive Date: 20190426
  Receipt Date: 20190520
  Transmission Date: 20190711
  Serious: Yes (Hospitalization)
  Sender: FDA-Public Use
  Company Number: JP-JNJFOC-20190438334

PATIENT
  Age: 80 Year
  Sex: Male

DRUGS (1)
  1. DUROTEP MT [Suspect]
     Active Substance: FENTANYL
     Indication: CANCER PAIN
     Route: 062

REACTIONS (1)
  - Pneumonia aspiration [Unknown]
